FAERS Safety Report 21845124 (Version 1)
Quarter: 2023Q1

REPORT INFORMATION
  Report Type: Spontaneous
  Country: US (occurrence: US)
  Receive Date: 20230110
  Receipt Date: 20230110
  Transmission Date: 20230418
  Serious: Yes (Death, Other)
  Sender: FDA-Public Use
  Company Number: US-AMGEN-USASP2023000588

PATIENT

DRUGS (12)
  1. RITUXIMAB [Suspect]
     Active Substance: RITUXIMAB
     Indication: Diffuse large B-cell lymphoma
     Dosage: UNK
     Route: 065
  2. RITUXIMAB [Suspect]
     Active Substance: RITUXIMAB
     Indication: Primary mediastinal large B-cell lymphoma
  3. CYCLOPHOSPHAMIDE [Concomitant]
     Active Substance: CYCLOPHOSPHAMIDE
     Indication: Primary mediastinal large B-cell lymphoma
     Dosage: UNK
  4. CYCLOPHOSPHAMIDE [Concomitant]
     Active Substance: CYCLOPHOSPHAMIDE
     Indication: Diffuse large B-cell lymphoma
  5. VINCRISTINE [Concomitant]
     Active Substance: VINCRISTINE
     Indication: Diffuse large B-cell lymphoma
     Dosage: UNK
  6. VINCRISTINE [Concomitant]
     Active Substance: VINCRISTINE
     Indication: Primary mediastinal large B-cell lymphoma
  7. PREDNISONE [Concomitant]
     Active Substance: PREDNISONE
     Indication: Primary mediastinal large B-cell lymphoma
     Dosage: UNK
  8. PREDNISONE [Concomitant]
     Active Substance: PREDNISONE
     Indication: Diffuse large B-cell lymphoma
  9. DOXORUBICIN [Concomitant]
     Active Substance: DOXORUBICIN
     Indication: Diffuse large B-cell lymphoma
     Dosage: UNK
  10. DOXORUBICIN [Concomitant]
     Active Substance: DOXORUBICIN
     Indication: Primary mediastinal large B-cell lymphoma
  11. BRENTUXIMAB VEDOTIN [Concomitant]
     Active Substance: BRENTUXIMAB VEDOTIN
     Indication: Primary mediastinal large B-cell lymphoma
     Dosage: UNK
  12. BRENTUXIMAB VEDOTIN [Concomitant]
     Active Substance: BRENTUXIMAB VEDOTIN
     Indication: Diffuse large B-cell lymphoma

REACTIONS (15)
  - Diffuse large B-cell lymphoma stage IV [Fatal]
  - Primary mediastinal large B-cell lymphoma stage III [Fatal]
  - Radiation pneumonitis [Unknown]
  - Therapy partial responder [Recovered/Resolved]
  - Radiation skin injury [Unknown]
  - Oesophagitis [Unknown]
  - Dysphonia [Unknown]
  - Dermatitis [Unknown]
  - Decreased appetite [Unknown]
  - Constipation [Unknown]
  - Dyspepsia [Unknown]
  - Fatigue [Unknown]
  - Cough [Unknown]
  - Dyspnoea [Unknown]
  - Diarrhoea [Unknown]
